FAERS Safety Report 16107245 (Version 1)
Quarter: 2019Q1

REPORT INFORMATION
  Report Type: Spontaneous
  Country: US (occurrence: US)
  Receive Date: 20190322
  Receipt Date: 20190322
  Transmission Date: 20190418
  Serious: No
  Sender: FDA-Public Use
  Company Number: US-SA-2019SA076595

PATIENT
  Age: 82 Year
  Sex: Female

DRUGS (11)
  1. ZOLPIDEM [Concomitant]
     Active Substance: ZOLPIDEM\ZOLPIDEM TARTRATE
  2. TUMS [Concomitant]
     Active Substance: CALCIUM CARBONATE
  3. LISINOPRIL. [Concomitant]
     Active Substance: LISINOPRIL
  4. NITROGLYCERIN. [Concomitant]
     Active Substance: NITROGLYCERIN
  5. PRALUENT [Suspect]
     Active Substance: ALIROCUMAB
     Indication: HYPERLIPIDAEMIA
     Dosage: 75 MG, QOW
     Route: 058
     Dates: start: 20190124
  6. VITAMIN B [Concomitant]
     Active Substance: VITAMIN B
  7. ALDACTONE [Concomitant]
     Active Substance: SPIRONOLACTONE
  8. MULTI COMPLETE [Concomitant]
  9. COREG [Concomitant]
     Active Substance: CARVEDILOL
  10. ASPIRIN [ACETYLSALICYLIC ACID] [Concomitant]
     Active Substance: ASPIRIN
  11. FAMOTIDINE. [Concomitant]
     Active Substance: FAMOTIDINE

REACTIONS (4)
  - Rash [Unknown]
  - Abdominal pain [Unknown]
  - Muscle spasms [Unknown]
  - Hypersensitivity [Unknown]
